FAERS Safety Report 4960281-2 (Version None)
Quarter: 2006Q2

REPORT INFORMATION
  Report Type: 
  Country: None (occurrence: None)
  Receive Date: 20060403
  Receipt Date: 20060320
  Transmission Date: 20061013
  Serious: Yes (Other)
  Sender: FDA-Public Use
  Company Number: PHEH2006US03691

PATIENT
  Age: 53 Year
  Sex: Female

DRUGS (2)
  1. AREDIA [Suspect]
     Dates: start: 19980101, end: 20050101
  2. ZOMETA [Suspect]
     Dates: start: 19980101, end: 20050101

REACTIONS (10)
  - BACTERIAL INFECTION [None]
  - BONE DEBRIDEMENT [None]
  - BONE DISORDER [None]
  - ERYTHEMA [None]
  - IMPAIRED HEALING [None]
  - LYMPHADENOPATHY [None]
  - ORAL PAIN [None]
  - OSTEONECROSIS [None]
  - PRIMARY SEQUESTRUM [None]
  - SWELLING [None]
